FAERS Safety Report 7789555-7 (Version None)
Quarter: 2011Q3

REPORT INFORMATION
  Report Type: 
  Country: None (occurrence: None)
  Receive Date: 20110930
  Receipt Date: 20110919
  Transmission Date: 20111222
  Serious: Yes (Other)
  Sender: FDA-Public Use
  Company Number: US-GENZYME-POMP-1001793

PATIENT
  Age: 6 Year
  Sex: Male

DRUGS (1)
  1. MYOZYME [Suspect]
     Indication: GLYCOGEN STORAGE DISEASE TYPE II
     Dosage: 20 MG/KG, Q2W
     Route: 042

REACTIONS (10)
  - INCREASED UPPER AIRWAY SECRETION [None]
  - RESPIRATORY DISTRESS [None]
  - DEPRESSED LEVEL OF CONSCIOUSNESS [None]
  - LETHARGY [None]
  - BRADYCARDIA [None]
  - AGITATION [None]
  - HYPOTENSION [None]
  - HYPOXIA [None]
  - FLUSHING [None]
  - TACHYCARDIA [None]
